FAERS Safety Report 19938499 (Version 1)
Quarter: 2021Q4

REPORT INFORMATION
  Report Type: Spontaneous
  Country: PT (occurrence: PT)
  Receive Date: 20211011
  Receipt Date: 20211011
  Transmission Date: 20220303
  Serious: Yes (Other)
  Sender: FDA-Public Use
  Company Number: PT-EMA-DD-20210915-JOON_U1-142626

PATIENT
  Age: 43 Year
  Sex: Male

DRUGS (1)
  1. INFLIXIMAB [Suspect]
     Active Substance: INFLIXIMAB
     Indication: Colitis ulcerative
     Dosage: UNKNOWN
     Route: 042
     Dates: start: 202010

REACTIONS (4)
  - Blood albumin decreased [Unknown]
  - Pseudopolyposis [Unknown]
  - Protein-losing gastroenteropathy [Unknown]
  - Abdominal pain [Unknown]
